FAERS Safety Report 8741425 (Version 2)
Quarter: 2013Q4

REPORT INFORMATION
  Report Type: Spontaneous
  Country: US (occurrence: US)
  Receive Date: 20120824
  Receipt Date: 20131101
  Transmission Date: 20140711
  Serious: No
  Sender: FDA-Public Use
  Company Number: US-009507513-1208USA003146

PATIENT
  Sex: Female

DRUGS (5)
  1. VICTRELIS [Suspect]
     Indication: HEPATITIS C
     Dosage: 800 MG, Q8H
     Route: 048
     Dates: start: 2012
  2. PEGINTRON [Suspect]
     Route: 048
  3. RIBASPHERE [Suspect]
  4. AMBIEN [Concomitant]
  5. PROZAC [Concomitant]

REACTIONS (4)
  - Insomnia [Unknown]
  - Influenza like illness [Unknown]
  - Depression [Unknown]
  - Fatigue [Unknown]
